FAERS Safety Report 25787954 (Version 2)
Quarter: 2025Q4

REPORT INFORMATION
  Report Type: Spontaneous
  Country: CH (occurrence: CH)
  Receive Date: 20250910
  Receipt Date: 20251022
  Transmission Date: 20260118
  Serious: Yes (Other)
  Sender: NOVARTIS
  Company Number: CH-002147023-NVSC2025CH137263

PATIENT
  Sex: Male

DRUGS (1)
  1. CERTICAN [Suspect]
     Active Substance: EVEROLIMUS
     Indication: Product used for unknown indication
     Dosage: UNK
     Route: 065

REACTIONS (8)
  - Erythroplasia of penis [Recovered/Resolved]
  - Squamous cell carcinoma [Unknown]
  - Skin reaction [Unknown]
  - Increased tendency to bruise [Unknown]
  - Skin disorder [Unknown]
  - Skin atrophy [Unknown]
  - Skin fragility [Not Recovered/Not Resolved]
  - Haematoma [Not Recovered/Not Resolved]
